FAERS Safety Report 25267374 (Version 1)
Quarter: 2025Q2

REPORT INFORMATION
  Report Type: Report from Study
  Country: US (occurrence: US)
  Receive Date: 20250505
  Receipt Date: 20250505
  Transmission Date: 20250716
  Serious: Yes (Hospitalization)
  Sender: ACADIA PHARMACEUTICALS
  Company Number: US-ACADIA PHARMACEUTICALS INC.-ACA-2025-PIM-005013

PATIENT
  Age: 75 Year
  Sex: Female

DRUGS (20)
  1. NUPLAZID [Suspect]
     Active Substance: PIMAVANSERIN TARTRATE
     Indication: Parkinson^s disease
     Dosage: 34 MILLIGRAM, QD
     Route: 048
     Dates: start: 20250404
  2. NUPLAZID [Suspect]
     Active Substance: PIMAVANSERIN TARTRATE
     Indication: Hallucination
  3. ASPIRIN [Concomitant]
     Active Substance: ASPIRIN
  4. ATORVASTATIN [Concomitant]
     Active Substance: ATORVASTATIN
  5. BUSPIRONE [Concomitant]
     Active Substance: BUSPIRONE HYDROCHLORIDE
  6. CLOPIDOGREL [Concomitant]
     Active Substance: CLOPIDOGREL BISULFATE
  7. DONEPEZIL [Concomitant]
     Active Substance: DONEPEZIL
  8. APTIOM [Concomitant]
     Active Substance: ESLICARBAZEPINE ACETATE
  9. FAMOTIDINE [Concomitant]
     Active Substance: FAMOTIDINE
  10. ACETAMINOPHEN\HYDROCODONE [Concomitant]
     Active Substance: ACETAMINOPHEN\HYDROCODONE
  11. KEPPRA [Concomitant]
     Active Substance: LEVETIRACETAM
  12. COZAAR [Concomitant]
     Active Substance: LOSARTAN POTASSIUM
  13. DIHYDROERGOCRISTINE\LOMIFYLLINE [Concomitant]
     Active Substance: DIHYDROERGOCRISTINE\LOMIFYLLINE
  14. KCL [Concomitant]
     Active Substance: POTASSIUM CHLORIDE
  15. CENTRUM ACTIVE [Concomitant]
  16. ALBUTEROL [Concomitant]
     Active Substance: ALBUTEROL
  17. CARVEDILOL [Concomitant]
     Active Substance: CARVEDILOL
  18. LEVOFLOXACIN [Concomitant]
     Active Substance: LEVOFLOXACIN
  19. NIFEDIPINE [Concomitant]
     Active Substance: NIFEDIPINE
  20. PREDNISONE [Concomitant]
     Active Substance: PREDNISONE

REACTIONS (2)
  - Hypertension [Recovered/Resolved]
  - Dyspnoea [Recovered/Resolved]

NARRATIVE: CASE EVENT DATE: 20250419
